FAERS Safety Report 14028263 (Version 2)
Quarter: 2018Q1

REPORT INFORMATION
  Report Type: Spontaneous
  Country: US (occurrence: US)
  Receive Date: 20170930
  Receipt Date: 20180221
  Transmission Date: 20180508
  Serious: No
  Sender: FDA-Public Use
  Company Number: PHHY2017US143976

PATIENT
  Sex: Female

DRUGS (1)
  1. SYSTANE GELDROPS [Suspect]
     Active Substance: POLYETHYLENE GLYCOL 400\PROPYLENE GLYCOL
     Indication: DRY EYE
     Dosage: UNK
     Route: 047
     Dates: start: 201707

REACTIONS (2)
  - Foreign body in eye [Recovered/Resolved]
  - Eye pain [Recovered/Resolved]

NARRATIVE: CASE EVENT DATE: 201707
